FAERS Safety Report 5026106-4 (Version None)
Quarter: 2006Q2

REPORT INFORMATION
  Report Type: 
  Country: None (occurrence: None)
  Receive Date: 20060612
  Receipt Date: 20060612
  Transmission Date: 20061013
  Serious: Yes (Hospitalization)
  Sender: FDA-Public Use
  Company Number: None

PATIENT
  Age: 69 Year
  Sex: Male
  Weight: 87.0906 kg

DRUGS (18)
  1. TAXOTERE [Suspect]
     Indication: NEOPLASM MALIGNANT
     Dosage: EVERY 3 WEEKS
     Dates: start: 20060131
  2. TAXOTERE [Suspect]
     Indication: NEOPLASM MALIGNANT
     Dosage: EVERY 3 WEEKS
     Dates: start: 20060214
  3. TAXOTERE [Suspect]
     Indication: NEOPLASM MALIGNANT
     Dosage: EVERY 3 WEEKS
     Dates: start: 20060312
  4. TAXOTERE [Suspect]
     Indication: NEOPLASM MALIGNANT
     Dosage: EVERY 3 WEEKS
     Dates: start: 20060326
  5. TAXOTERE [Suspect]
     Indication: NEOPLASM MALIGNANT
     Dosage: EVERY 3 WEEKS
     Dates: start: 20060409
  6. TAXOTERE [Suspect]
     Indication: NEOPLASM MALIGNANT
     Dosage: EVERY 3 WEEKS
     Dates: start: 20060430
  7. CISPLATIN [Suspect]
     Indication: NEOPLASM MALIGNANT
     Dosage: EVERY 3 WEEKS
     Dates: start: 20060131
  8. CISPLATIN [Suspect]
     Indication: NEOPLASM MALIGNANT
     Dosage: EVERY 3 WEEKS
     Dates: start: 20060214
  9. CISPLATIN [Suspect]
     Indication: NEOPLASM MALIGNANT
     Dosage: EVERY 3 WEEKS
     Dates: start: 20060312
  10. CISPLATIN [Suspect]
     Indication: NEOPLASM MALIGNANT
     Dosage: EVERY 3 WEEKS
     Dates: start: 20060326
  11. CISPLATIN [Suspect]
     Indication: NEOPLASM MALIGNANT
     Dosage: EVERY 3 WEEKS
     Dates: start: 20060409
  12. CISPLATIN [Suspect]
     Indication: NEOPLASM MALIGNANT
     Dosage: EVERY 3 WEEKS
     Dates: start: 20060430
  13. FLUOROURACIL [Suspect]
     Indication: NEOPLASM MALIGNANT
     Dosage: EVERY 3 WEEKS
     Dates: start: 20060131
  14. FLUOROURACIL [Suspect]
     Indication: NEOPLASM MALIGNANT
     Dosage: EVERY 3 WEEKS
     Dates: start: 20060214
  15. FLUOROURACIL [Suspect]
     Indication: NEOPLASM MALIGNANT
     Dosage: EVERY 3 WEEKS
     Dates: start: 20060312
  16. FLUOROURACIL [Suspect]
     Indication: NEOPLASM MALIGNANT
     Dosage: EVERY 3 WEEKS
     Dates: start: 20060326
  17. FLUOROURACIL [Suspect]
     Indication: NEOPLASM MALIGNANT
     Dosage: EVERY 3 WEEKS
     Dates: start: 20060409
  18. FLUOROURACIL [Suspect]
     Indication: NEOPLASM MALIGNANT
     Dosage: EVERY 3 WEEKS
     Dates: start: 20060430

REACTIONS (1)
  - PULMONARY EMBOLISM [None]
